FAERS Safety Report 7525666-9 (Version None)
Quarter: 2011Q2

REPORT INFORMATION
  Report Type: 
  Country: None (occurrence: None)
  Receive Date: 20110606
  Receipt Date: 20110526
  Transmission Date: 20111010
  Serious: Yes (Death, Other)
  Sender: FDA-Public Use
  Company Number: BR-MEDIMMUNE-MEDI-0013240

PATIENT
  Sex: Male

DRUGS (6)
  1. UNKNOWN MEDICATIONS [Concomitant]
  2. DIGOXIN [Concomitant]
     Dates: start: 20100901
  3. CAPTOPRIL [Concomitant]
     Dates: start: 20101101
  4. SYNAGIS [Suspect]
     Dates: start: 20110418, end: 20110418
  5. FUROSEMIDE [Concomitant]
     Dates: start: 20100816
  6. SPIRONOLACTONE [Concomitant]
     Dates: start: 20100901

REACTIONS (13)
  - BRONCHITIS [None]
  - RENAL FAILURE [None]
  - DYSPNOEA [None]
  - ASTHMA [None]
  - LUNG INFECTION [None]
  - INFLUENZA [None]
  - PNEUMONIA [None]
  - CONGENITAL CARDIOVASCULAR ANOMALY [None]
  - ANAEMIA [None]
  - CARDIAC INFECTION [None]
  - ACUTE RESPIRATORY FAILURE [None]
  - POST PROCEDURAL COMPLICATION [None]
  - PULMONARY HYPERTENSION [None]
